FAERS Safety Report 4434645-X (Version None)
Quarter: 2004Q3

REPORT INFORMATION
  Report Type: 
  Country: None (occurrence: None)
  Receive Date: 20040827
  Receipt Date: 20040817
  Transmission Date: 20050211
  Serious: Yes (Hospitalization)
  Sender: FDA-Public Use
  Company Number: FR-MERCK-0408FRA00031

PATIENT
  Age: 81 Year
  Sex: Female

DRUGS (6)
  1. ALFACALCIDOL [Concomitant]
     Indication: HYPOPARATHYROIDISM
     Route: 048
     Dates: end: 20040606
  2. CLOPIDOGREL BISULFATE [Suspect]
     Indication: ISCHAEMIC CARDIOMYOPATHY
     Route: 048
  3. FLUINDIONE [Suspect]
     Indication: ISCHAEMIC CARDIOMYOPATHY
     Route: 048
     Dates: end: 20040606
  4. FUROSEMIDE [Concomitant]
     Indication: ISCHAEMIC CARDIOMYOPATHY
     Route: 048
     Dates: end: 20040607
  5. PERINDOPRIL ERBUMINE [Concomitant]
     Indication: ISCHAEMIC CARDIOMYOPATHY
     Route: 048
     Dates: end: 20040606
  6. ZOCOR [Suspect]
     Indication: HYPERCHOLESTEROLAEMIA
     Route: 048

REACTIONS (3)
  - DRUG INTERACTION [None]
  - HAEMATOMA [None]
  - HYPERCALCAEMIA [None]
